FAERS Safety Report 7251637-6 (Version None)
Quarter: 2011Q1

REPORT INFORMATION
  Report Type: 
  Country: None (occurrence: None)
  Receive Date: 20110128
  Receipt Date: 20110121
  Transmission Date: 20110831
  Serious: Yes (Hospitalization)
  Sender: FDA-Public Use
  Company Number: AU-ABBOTT-11P-008-0700609-00

PATIENT

DRUGS (5)
  1. ZIDOVUDINE [Concomitant]
     Indication: PRODUCT USED FOR UNKNOWN INDICATION
     Dates: start: 20070815, end: 20110108
  2. KALETRA [Suspect]
     Indication: HIV INFECTION
     Dosage: 800/200
     Route: 048
     Dates: start: 20101207, end: 20110108
  3. COTRIM [Concomitant]
     Indication: ANTIFUNGAL PROPHYLAXIS
     Dosage: 160/800
     Dates: start: 20100614, end: 20110119
  4. AZITHROMYCIN [Concomitant]
     Indication: PROPHYLAXIS
     Dates: start: 20101207
  5. LAMIVUDINE [Concomitant]
     Indication: PRODUCT USED FOR UNKNOWN INDICATION
     Dates: start: 20070815, end: 20110108

REACTIONS (1)
  - FEBRILE NEUTROPENIA [None]
